FAERS Safety Report 23993488 (Version 1)
Quarter: 2024Q2

REPORT INFORMATION
  Report Type: Spontaneous
  Country: GB (occurrence: GB)
  Receive Date: 20240620
  Receipt Date: 20240620
  Transmission Date: 20240716
  Serious: Yes (Other)
  Sender: FDA-Public Use
  Company Number: None

PATIENT
  Age: 62 Year
  Sex: Female
  Weight: 76 kg

DRUGS (2)
  1. BACLOFEN [Suspect]
     Active Substance: BACLOFEN
     Route: 065
  2. LYRICA [Concomitant]
     Active Substance: PREGABALIN
     Indication: Neuralgia
     Dates: start: 2022

REACTIONS (1)
  - Nervous system disorder [Not Recovered/Not Resolved]

NARRATIVE: CASE EVENT DATE: 20240520
